FAERS Safety Report 10564311 (Version 2)
Quarter: 2014Q4

REPORT INFORMATION
  Report Type: Report from Study
  Country: CA (occurrence: CA)
  Receive Date: 20141104
  Receipt Date: 20141124
  Transmission Date: 20150529
  Serious: Yes (Death, Hospitalization, Other)
  Sender: FDA-Public Use
  Company Number: CA-ABBVIE-14K-028-1303196-00

PATIENT
  Age: 56 Year
  Sex: Female

DRUGS (1)
  1. HUMIRA [Suspect]
     Active Substance: ADALIMUMAB
     Indication: CROHN^S DISEASE
     Route: 058
     Dates: start: 20100226

REACTIONS (4)
  - Anastomotic leak [Fatal]
  - Sepsis [Fatal]
  - Incarcerated hernia [Unknown]
  - Small intestinal obstruction [Fatal]

NARRATIVE: CASE EVENT DATE: 20140815
